FAERS Safety Report 26174359 (Version 1)
Quarter: 2025Q4

REPORT INFORMATION
  Report Type: Report from Study
  Country: CN (occurrence: CN)
  Receive Date: 20251218
  Receipt Date: 20251218
  Transmission Date: 20260118
  Serious: Yes (Hospitalization)
  Sender: ALEXION PHARMACEUTICALS
  Company Number: CN-ASTRAZENECA-202512GLO010049CN

PATIENT
  Age: 62 Year
  Sex: Male
  Weight: 65 kg

DRUGS (7)
  1. OSIMERTINIB [Suspect]
     Active Substance: OSIMERTINIB
     Indication: Lung adenocarcinoma
     Dosage: 160 MILLIGRAM, Q2W, ONCE
     Route: 061
     Dates: start: 20250925, end: 20251126
  2. OSIMERTINIB [Suspect]
     Active Substance: OSIMERTINIB
     Dosage: 80 MILLIGRAM, Q2W,X ONCE
     Route: 061
     Dates: start: 20251127, end: 20251127
  3. BECOTATUG [Suspect]
     Active Substance: BECOTATUG
     Indication: Lung adenocarcinoma
     Dosage: 6 MILLIGRAM/KILOGRAM, Q2W,ONCE
     Dates: start: 20250925, end: 20250925
  4. BECOTATUG [Suspect]
     Active Substance: BECOTATUG
     Dosage: 6 MILLIGRAM/KILOGRAM, Q2W,ONCE
     Dates: start: 20251009, end: 20251009
  5. BECOTATUG [Suspect]
     Active Substance: BECOTATUG
     Dosage: 6 MILLIGRAM/KILOGRAM, Q2W,ONCE
     Dates: start: 20251023, end: 20251023
  6. BECOTATUG [Suspect]
     Active Substance: BECOTATUG
     Dosage: 6 MILLIGRAM/KILOGRAM, Q2W,ONCE
     Dates: start: 20251106, end: 20251106
  7. BECOTATUG [Suspect]
     Active Substance: BECOTATUG
     Dosage: 4.8 MILLIGRAM/KILOGRAM, Q2W,ONCE
     Dates: start: 20251119, end: 20251119

REACTIONS (1)
  - Atrial fibrillation [Recovered/Resolved]

NARRATIVE: CASE EVENT DATE: 20251130
